FAERS Safety Report 7329077-0 (Version None)
Quarter: 2011Q1

REPORT INFORMATION
  Report Type: 
  Country: None (occurrence: None)
  Receive Date: 20110303
  Receipt Date: 20110225
  Transmission Date: 20110831
  Serious: Yes (Other)
  Sender: FDA-Public Use
  Company Number: US-GENZYME-RENA-1001097

PATIENT
  Sex: Female

DRUGS (2)
  1. RENVELA [Suspect]
     Indication: HYPERPHOSPHATAEMIA
     Dosage: 2.4 G, TID
     Route: 048
     Dates: start: 20110218
  2. RENVELA [Suspect]
     Dosage: UNK
     Route: 048
     Dates: start: 20101011

REACTIONS (2)
  - CATHETERISATION CARDIAC [None]
  - RASH PRURITIC [None]
